FAERS Safety Report 4673351-3 (Version None)
Quarter: 2005Q2

REPORT INFORMATION
  Report Type: 
  Country: None (occurrence: None)
  Receive Date: 20050524
  Receipt Date: 20050524
  Transmission Date: 20051028
  Serious: Yes (Hospitalization)
  Sender: FDA-Public Use
  Company Number: None

PATIENT
  Age: 77 Year
  Sex: Male
  Weight: 72.5755 kg

DRUGS (2)
  1. VANCOMYCIN [Suspect]
     Indication: PROPHYLAXIS
     Dosage: 1000 MG X ONE INTRAVENOUS
     Route: 042
     Dates: start: 20050307, end: 20050307
  2. VANCOMYCIN [Suspect]
     Indication: SURGERY
     Dosage: 1000 MG X ONE INTRAVENOUS
     Route: 042
     Dates: start: 20050307, end: 20050307

REACTIONS (5)
  - ANAESTHETIC COMPLICATION [None]
  - DRUG HYPERSENSITIVITY [None]
  - FLUSHING [None]
  - HYPOTENSION [None]
  - RED MAN SYNDROME [None]
